FAERS Safety Report 17051384 (Version 1)
Quarter: 2019Q4

REPORT INFORMATION
  Report Type: Spontaneous
  Country: GB (occurrence: GB)
  Receive Date: 20191120
  Receipt Date: 20191120
  Transmission Date: 20200122
  Serious: Yes (Other)
  Sender: FDA-Public Use
  Company Number: GB-CELLTRION INC.-2019GB026434

PATIENT

DRUGS (1)
  1. RITUXIMAB (UNKNOWN) [Suspect]
     Active Substance: RITUXIMAB
     Indication: IMMUNOGLOBULIN G4 RELATED DISEASE
     Dosage: UNK
     Route: 065

REACTIONS (6)
  - Retroperitoneal fibrosis [Unknown]
  - Product use in unapproved indication [Unknown]
  - Disease progression [Unknown]
  - Immunoglobulin G4 related disease [Unknown]
  - Renal impairment [Unknown]
  - Scar [Unknown]
